FAERS Safety Report 13463110 (Version 1)
Quarter: 2017Q2

REPORT INFORMATION
  Report Type: Spontaneous
  Country: US (occurrence: US)
  Receive Date: 20170420
  Receipt Date: 20170420
  Transmission Date: 20170830
  Serious: Yes (Death)
  Sender: FDA-Public Use
  Company Number: US-BAYER-2017-071197

PATIENT
  Age: 64 Year
  Sex: Female
  Weight: 91.02 kg

DRUGS (4)
  1. CELECOXIB. [Suspect]
     Active Substance: CELECOXIB
     Dosage: UNK PLACEBO
  2. ACETAMINOPHEN. [Suspect]
     Active Substance: ACETAMINOPHEN
     Indication: OSTEOARTHRITIS
     Dosage: 500 MG, PRN (MAX 3 DAYS/WEEK, 3000 MG/DAY)
     Route: 048
     Dates: start: 20170313
  3. ALEVE [Suspect]
     Active Substance: NAPROXEN SODIUM
     Indication: OSTEOARTHRITIS
     Dosage: 500 MG, QD (1 TABLET AM, 1 TABLET PM)
     Route: 048
     Dates: start: 20170313
  4. HYDROCHLOROTHIAZIDE. [Suspect]
     Active Substance: HYDROCHLOROTHIAZIDE
     Indication: BLOOD PRESSURE MANAGEMENT
     Dosage: 12.5 MG, QD
     Route: 048
     Dates: start: 2013

REACTIONS (1)
  - Death [Fatal]

NARRATIVE: CASE EVENT DATE: 20170317
